FAERS Safety Report 4761303-4 (Version None)
Quarter: 2005Q3

REPORT INFORMATION
  Report Type: 
  Country: None (occurrence: None)
  Receive Date: 20050901
  Receipt Date: 20050823
  Transmission Date: 20060218
  Serious: Yes (Other)
  Sender: FDA-Public Use
  Company Number: 2005-08-1612

PATIENT

DRUGS (1)
  1. INTRON A [Suspect]

REACTIONS (2)
  - MISCARRIAGE OF PARTNER [None]
  - TRANSMISSION OF DRUG VIA SEMEN [None]
